FAERS Safety Report 13105924 (Version 1)
Quarter: 2017Q1

REPORT INFORMATION
  Report Type: Spontaneous
  Country: JP (occurrence: JP)
  Receive Date: 20170111
  Receipt Date: 20170111
  Transmission Date: 20170428
  Serious: Yes (Other)
  Sender: FDA-Public Use
  Company Number: JP-ABBVIE-17P-087-1836443-00

PATIENT
  Age: 56 Year
  Sex: Male

DRUGS (1)
  1. VIEKIRAX [Suspect]
     Active Substance: OMBITASVIR\PARITAPREVIR\RITONAVIR
     Indication: CHRONIC HEPATITIS C
     Route: 048
     Dates: start: 20161214, end: 20161227

REACTIONS (1)
  - Jaundice [Recovering/Resolving]

NARRATIVE: CASE EVENT DATE: 20161220
